FAERS Safety Report 6313820-3 (Version None)
Quarter: 2009Q3

REPORT INFORMATION
  Report Type: 
  Country: None (occurrence: None)
  Receive Date: 20090817
  Receipt Date: 20090817
  Transmission Date: 20100115
  Serious: Yes (Life-Threatening, Hospitalization, Disabling)
  Sender: FDA-Public Use
  Company Number: None

PATIENT
  Age: 79 Year
  Sex: Male
  Weight: 66.2252 kg

DRUGS (1)
  1. TAPAZOLE [Suspect]
     Indication: HYPERTHYROIDISM
     Dates: start: 20090210, end: 20090325

REACTIONS (6)
  - BILIRUBIN CONJUGATED INCREASED [None]
  - BLOOD ALKALINE PHOSPHATASE INCREASED [None]
  - BLOOD BILIRUBIN INCREASED [None]
  - HEPATIC ENZYME INCREASED [None]
  - JAUNDICE [None]
  - SERUM FERRITIN INCREASED [None]
